FAERS Safety Report 14631518 (Version 1)
Quarter: 2018Q1

REPORT INFORMATION
  Report Type: Spontaneous
  Country: AU (occurrence: AU)
  Receive Date: 20180313
  Receipt Date: 20180313
  Transmission Date: 20180509
  Serious: Yes (Other)
  Sender: FDA-Public Use
  Company Number: AU-JNJFOC-20180314129

PATIENT
  Age: 45 Year
  Sex: Male

DRUGS (2)
  1. RIVAROXABAN [Suspect]
     Active Substance: RIVAROXABAN
     Indication: PULMONARY EMBOLISM
     Route: 048
     Dates: start: 201608
  2. RIVAROXABAN [Suspect]
     Active Substance: RIVAROXABAN
     Indication: DEEP VEIN THROMBOSIS
     Route: 048
     Dates: start: 201608

REACTIONS (2)
  - IgA nephropathy [Recovering/Resolving]
  - Henoch-Schonlein purpura [Recovering/Resolving]
